FAERS Safety Report 17899366 (Version 1)
Quarter: 2020Q2

REPORT INFORMATION
  Report Type: Spontaneous
  Country: US (occurrence: US)
  Receive Date: 20200616
  Receipt Date: 20200616
  Transmission Date: 20200714
  Serious: No
  Sender: FDA-Public Use
  Company Number: US-ADVANZ PHARMA-202003001546

PATIENT

DRUGS (2)
  1. HYDROXYCHLOROQUINE [Suspect]
     Active Substance: HYDROXYCHLOROQUINE
     Indication: SJOGREN^S SYNDROME
     Dosage: 200 MG, BID
     Dates: start: 201910, end: 201910
  2. HYDROXYCHLOROQUINE [Suspect]
     Active Substance: HYDROXYCHLOROQUINE
     Dosage: UNK, QD SHE NEVER TOOK THE PRODUCT 2X DAILY; SHE ONLY TOOK 1X DAILY
     Dates: start: 201910, end: 201910

REACTIONS (4)
  - Pain [Unknown]
  - Off label use [Unknown]
  - Treatment noncompliance [Unknown]
  - Product formulation issue [Unknown]
